FAERS Safety Report 4891186-3 (Version None)
Quarter: 2006Q1

REPORT INFORMATION
  Report Type: 
  Country: None (occurrence: None)
  Receive Date: 20060125
  Receipt Date: 20050830
  Transmission Date: 20060701
  Serious: Yes (Hospitalization)
  Sender: FDA-Public Use
  Company Number: FR-GLAXOSMITHKLINE-B0392738A

PATIENT
  Age: 89 Year
  Sex: Female
  Weight: 60 kg

DRUGS (8)
  1. DEROXAT [Suspect]
     Indication: DYSTHYMIC DISORDER
     Dosage: 20MG PER DAY
     Route: 048
     Dates: end: 20041212
  2. LASILIX [Suspect]
     Indication: HYPERTENSIVE HEART DISEASE
     Dosage: 40MG PER DAY
     Route: 048
     Dates: end: 20041215
  3. TRIATEC [Suspect]
     Indication: HYPERTENSIVE HEART DISEASE
     Dosage: 5MG PER DAY
     Route: 048
  4. SINTROM [Suspect]
     Indication: ATRIAL FIBRILLATION
     Dosage: 1MG PER DAY
     Route: 048
  5. CORDARONE [Suspect]
     Indication: HYPERTENSIVE HEART DISEASE
     Dosage: 200MG PER DAY
     Route: 048
     Dates: end: 20041225
  6. AMLOR [Suspect]
     Indication: HYPERTENSIVE HEART DISEASE
     Dosage: 10MG PER DAY
     Route: 048
  7. DIFFU K [Concomitant]
     Dosage: 3CAP PER DAY
     Route: 048
  8. VASTAREL [Concomitant]
     Dosage: 2TAB PER DAY
     Route: 048

REACTIONS (14)
  - BLOOD POTASSIUM DECREASED [None]
  - DISTURBANCE IN ATTENTION [None]
  - DRUG INTERACTION [None]
  - DYSPNOEA [None]
  - HYPERCAPNIA [None]
  - HYPOKALAEMIA [None]
  - HYPONATRAEMIA [None]
  - OBSTRUCTIVE AIRWAYS DISORDER [None]
  - PO2 DECREASED [None]
  - PULMONARY FIBROSIS [None]
  - RESPIRATORY DISORDER [None]
  - RESPIRATORY GAS EXCHANGE DISORDER [None]
  - SOMNOLENCE [None]
  - TOTAL LUNG CAPACITY DECREASED [None]
